FAERS Safety Report 9053494 (Version 1)
Quarter: 2013Q1

REPORT INFORMATION
  Report Type: Spontaneous
  Country: US (occurrence: US)
  Receive Date: 20130208
  Receipt Date: 20130208
  Transmission Date: 20140127
  Serious: No
  Sender: FDA-Public Use
  Company Number: US-BAYER-2013-014284

PATIENT
  Age: 33 Year
  Sex: Female

DRUGS (1)
  1. MIRENA [Suspect]
     Dosage: 20 MCG/24HR, CONT
     Route: 015
     Dates: start: 201205

REACTIONS (6)
  - Abdominal pain lower [None]
  - Nausea [None]
  - Urinary incontinence [None]
  - Pyrexia [None]
  - Migraine [None]
  - Contraindication to medical treatment [None]
